FAERS Safety Report 5241194-8 (Version None)
Quarter: 2007Q1

REPORT INFORMATION
  Report Type: 
  Country: None (occurrence: None)
  Receive Date: 20070220
  Receipt Date: 20070209
  Transmission Date: 20070707
  Serious: Yes (Hospitalization, Disabling)
  Sender: FDA-Public Use
  Company Number: FR-JNJFOC-20070202614

PATIENT
  Age: 54 Year
  Sex: Male

DRUGS (6)
  1. REMICADE [Suspect]
     Indication: ANKYLOSING SPONDYLITIS
     Route: 042
  2. CHRONO INDOCID [Suspect]
     Indication: DRUG USE FOR UNKNOWN INDICATION
     Route: 065
  3. LEXOMIL [Concomitant]
     Route: 065
  4. PERINDOPRIL ERBUMINE [Concomitant]
     Route: 065
  5. TAHOR [Concomitant]
     Route: 065
  6. KENZEN [Concomitant]
     Route: 065

REACTIONS (2)
  - CHEST PAIN [None]
  - CORONARY ARTERY STENOSIS [None]
